FAERS Safety Report 25059223 (Version 2)
Quarter: 2025Q1

REPORT INFORMATION
  Report Type: Spontaneous
  Country: JP (occurrence: JP)
  Receive Date: 20250310
  Receipt Date: 20250315
  Transmission Date: 20250409
  Serious: Yes (Other)
  Sender: ALEXION PHARMACEUTICALS
  Company Number: JP-ASTRAZENECA-250021742_013120_P_1

PATIENT
  Age: 65 Year

DRUGS (2)
  1. DURVALUMAB [Suspect]
     Active Substance: DURVALUMAB
     Indication: Non-small cell lung cancer
     Dosage: 10 MILLIGRAM/KILOGRAM, Q2W
  2. DURVALUMAB [Suspect]
     Active Substance: DURVALUMAB
     Dosage: 10 MILLIGRAM/KILOGRAM, Q2W

REACTIONS (9)
  - Pneumothorax [Unknown]
  - Pneumonia [Unknown]
  - Eosinophilic pneumonia [Unknown]
  - Pulmonary artery thrombosis [Unknown]
  - Aspergillus infection [Unknown]
  - Myocardial infarction [Unknown]
  - Abscess [Unknown]
  - Haemoptysis [Unknown]
  - Haemoptysis [Unknown]
